FAERS Safety Report 16116398 (Version 6)
Quarter: 2024Q3

REPORT INFORMATION
  Report Type: Spontaneous
  Country: PT (occurrence: PT)
  Receive Date: 20190326
  Receipt Date: 20240827
  Transmission Date: 20241016
  Serious: Yes (Hospitalization, Other)
  Sender: AUROBINDO
  Company Number: None

PATIENT
  Age: 71 Year
  Sex: Male

DRUGS (44)
  1. MYCOPHENOLATE MOFETIL [Suspect]
     Active Substance: MYCOPHENOLATE MOFETIL
     Indication: Immunosuppressant drug therapy
     Dosage: 250 MILLIGRAM, 3 TIMES A DAY
     Route: 065
  2. MYCOPHENOLATE MOFETIL [Suspect]
     Active Substance: MYCOPHENOLATE MOFETIL
     Indication: Renal transplant
     Dosage: 250 MILLIGRAM, TWO TIMES A DAY
     Route: 065
  3. MYCOPHENOLATE MOFETIL [Suspect]
     Active Substance: MYCOPHENOLATE MOFETIL
     Indication: Prophylaxis against transplant rejection
     Dosage: 250 MILLIGRAM, TWO TIMES A DAY
     Route: 065
  4. MYCOPHENOLATE MOFETIL [Suspect]
     Active Substance: MYCOPHENOLATE MOFETIL
     Indication: Immunosuppression
     Dosage: 750 MILLIGRAM, TWO TIMES A DAY (12 HOUR)
     Route: 065
  5. MYCOPHENOLATE MOFETIL [Suspect]
     Active Substance: MYCOPHENOLATE MOFETIL
     Dosage: 750 MILLIGRAM, TWO TIMES A DAY
     Route: 065
     Dates: start: 2016
  6. MYCOPHENOLATE MOFETIL [Suspect]
     Active Substance: MYCOPHENOLATE MOFETIL
     Dosage: 250 MILLIGRAM, TWO TIMES A DAY
     Route: 065
  7. MYCOPHENOLATE MOFETIL [Suspect]
     Active Substance: MYCOPHENOLATE MOFETIL
     Dosage: 250 MILLIGRAM, TWO TIMES A DAY
     Route: 065
  8. MYCOPHENOLATE MOFETIL [Suspect]
     Active Substance: MYCOPHENOLATE MOFETIL
     Dosage: 250 MILLIGRAM, TWO TIMES A DAY
     Route: 065
  9. MYCOPHENOLATE MOFETIL [Suspect]
     Active Substance: MYCOPHENOLATE MOFETIL
     Dosage: 250 MILLIGRAM, TWO TIMES A DAY
     Route: 065
  10. MYCOPHENOLATE MOFETIL [Suspect]
     Active Substance: MYCOPHENOLATE MOFETIL
     Dosage: 250 MILLIGRAM, ONCE A DAY
     Route: 065
  11. VALGANCICLOVIR [Suspect]
     Active Substance: VALGANCICLOVIR
     Indication: Cytomegalovirus viraemia
     Dosage: 450 MILLIGRAM, ONCE A DAY
     Route: 065
     Dates: start: 2016
  12. VALGANCICLOVIR [Suspect]
     Active Substance: VALGANCICLOVIR
     Dosage: 450 MILLIGRAM, TWO TIMES A DAY, (INCREASED TO 450 MG BID)
     Route: 065
  13. VALGANCICLOVIR [Suspect]
     Active Substance: VALGANCICLOVIR
     Dosage: 900 MILLIGRAM, ONCE A DAY (INCREASED TO 450 MG BID)
     Route: 065
  14. VALGANCICLOVIR [Suspect]
     Active Substance: VALGANCICLOVIR
     Dosage: 450 MILLIGRAM, TWO TIMES A DAY, (INCREASED TO 450 MG BID)
     Route: 065
  15. VALGANCICLOVIR [Suspect]
     Active Substance: VALGANCICLOVIR
     Dosage: 450 MILLIGRAM, TWO TIMES A DAY, (INCREASED TO 450 MG BID)
     Route: 065
  16. VALGANCICLOVIR [Suspect]
     Active Substance: VALGANCICLOVIR
     Dosage: 450 MILLIGRAM, TWO TIMES A DAY, (INCREASED TO 450 MG BID)
     Route: 065
  17. VALGANCICLOVIR [Suspect]
     Active Substance: VALGANCICLOVIR
     Dosage: 450 MILLIGRAM, TWO TIMES A DAY, (INCREASED TO 450 MG BID)
     Route: 065
  18. VALGANCICLOVIR [Suspect]
     Active Substance: VALGANCICLOVIR
     Dosage: 450 MILLIGRAM, TWO TIMES A DAY, (INCREASED TO 450 MG BID)
     Route: 065
  19. VALGANCICLOVIR [Suspect]
     Active Substance: VALGANCICLOVIR
     Dosage: 450 MILLIGRAM, TWO TIMES A DAY, (INCREASED TO 450 MG BID)
     Route: 065
  20. LEFLUNOMIDE [Suspect]
     Active Substance: LEFLUNOMIDE
     Indication: Renal transplant
     Dosage: 10 MILLIGRAM, ONCE A DAY
     Route: 065
  21. LEFLUNOMIDE [Suspect]
     Active Substance: LEFLUNOMIDE
     Indication: Immunosuppressant drug therapy
     Dosage: 20 MILLIGRAM, ONCE A DAY
     Route: 065
  22. LEFLUNOMIDE [Suspect]
     Active Substance: LEFLUNOMIDE
     Dosage: 20 MILLIGRAM, ONCE A DAY
     Route: 065
  23. LEFLUNOMIDE [Suspect]
     Active Substance: LEFLUNOMIDE
     Dosage: 20 MILLIGRAM, ONCE A DAY
     Route: 065
  24. LEFLUNOMIDE [Suspect]
     Active Substance: LEFLUNOMIDE
     Dosage: 20 MILLIGRAM, ONCE A DAY
     Route: 065
  25. LEFLUNOMIDE [Suspect]
     Active Substance: LEFLUNOMIDE
     Dosage: 20 MILLIGRAM, ONCE A DAY
     Route: 065
  26. LEFLUNOMIDE [Suspect]
     Active Substance: LEFLUNOMIDE
     Dosage: 20 MILLIGRAM, ONCE A DAY
     Route: 065
  27. TACROLIMUS [Suspect]
     Active Substance: TACROLIMUS
     Indication: Immunosuppressant drug therapy
     Dosage: 7.5 MILLIGRAM, ONCE A DAY
     Route: 065
  28. TACROLIMUS [Suspect]
     Active Substance: TACROLIMUS
     Indication: Renal transplant
     Dosage: 4 MILLIGRAM, ONCE A DAY
     Route: 065
  29. TACROLIMUS [Suspect]
     Active Substance: TACROLIMUS
     Indication: Prophylaxis against transplant rejection
     Dosage: 6.5 MILLIGRAM, ONCE A DAY
     Route: 065
  30. TACROLIMUS [Suspect]
     Active Substance: TACROLIMUS
     Indication: Immunosuppression
     Dosage: 6.5 MILLIGRAM, ONCE A DAY
     Route: 065
  31. TACROLIMUS [Suspect]
     Active Substance: TACROLIMUS
     Dosage: 4.5 MILLIGRAM, ONCE A DAY
     Route: 065
  32. TACROLIMUS [Suspect]
     Active Substance: TACROLIMUS
     Dosage: 5.5 MILLIGRAM, ONCE A DAY
     Route: 065
  33. TACROLIMUS [Suspect]
     Active Substance: TACROLIMUS
     Dosage: 3.5 MILLIGRAM, ONCE A DAY
     Route: 065
  34. TACROLIMUS [Suspect]
     Active Substance: TACROLIMUS
     Dosage: 9 MILLIGRAM, ONCE A DAY
     Route: 065
     Dates: start: 2016
  35. PREDNISOLONE [Suspect]
     Active Substance: PREDNISOLONE
     Indication: Renal transplant
     Dosage: 12.5 MILLIGRAM
     Route: 065
  36. PREDNISOLONE [Suspect]
     Active Substance: PREDNISOLONE
     Indication: Prophylaxis against transplant rejection
     Dosage: 7.5 MILLIGRAM, ONCE A DAY
     Route: 065
  37. PREDNISOLONE [Suspect]
     Active Substance: PREDNISOLONE
     Indication: Immunosuppressant drug therapy
     Dosage: 5 MILLIGRAM, ONCE A DAY
     Route: 065
  38. PREDNISOLONE [Suspect]
     Active Substance: PREDNISOLONE
     Indication: Immunosuppression
     Dosage: 2.5 MILLIGRAM, ONCE A DAY
     Route: 065
  39. PREDNISOLONE [Suspect]
     Active Substance: PREDNISOLONE
     Dosage: 15 MILLIGRAM, ONCE A DAY
     Route: 065
  40. PREDNISOLONE [Suspect]
     Active Substance: PREDNISOLONE
     Dosage: 10 MILLIGRAM, ONCE A DAY
     Route: 065
  41. PREDNISOLONE [Suspect]
     Active Substance: PREDNISOLONE
     Dosage: 20 MILLIGRAM, ONCE A DAY
     Route: 065
     Dates: start: 2016
  42. THYMOGLOBULIN [Suspect]
     Active Substance: LAPINE T-LYMPHOCYTE IMMUNE GLOBULIN
     Indication: Renal transplant
     Dosage: UNK, 7-DAY CYCLE
     Route: 042
  43. THYMOGLOBULIN [Suspect]
     Active Substance: LAPINE T-LYMPHOCYTE IMMUNE GLOBULIN
     Indication: Immunosuppressant drug therapy
  44. GANCICLOVIR [Concomitant]
     Active Substance: GANCICLOVIR
     Indication: Viraemia
     Dosage: 450 MILLIGRAM, ONCE A DAY
     Route: 065

REACTIONS (8)
  - Renal impairment [Unknown]
  - Polyomavirus-associated nephropathy [Unknown]
  - Viraemia [Unknown]
  - Cytomegalovirus viraemia [Recovered/Resolved]
  - Cytomegalovirus infection [Recovered/Resolved]
  - Drug ineffective [Unknown]
  - Prescribed underdose [Unknown]
  - Off label use [Unknown]
